FAERS Safety Report 9440556 (Version 1)
Quarter: 2013Q3

REPORT INFORMATION
  Report Type: Spontaneous
  Country: IL (occurrence: IL)
  Receive Date: 20130805
  Receipt Date: 20130805
  Transmission Date: 20140515
  Serious: Yes (Other)
  Sender: FDA-Public Use
  Company Number: IL-JNJFOC-20130800135

PATIENT
  Age: 33 Year
  Sex: Male

DRUGS (1)
  1. SIMPONI [Suspect]
     Indication: PSORIATIC ARTHROPATHY
     Dosage: 3 ADMINISTRATIONS
     Route: 058
     Dates: start: 20130418

REACTIONS (2)
  - Bursitis [Not Recovered/Not Resolved]
  - Drug ineffective [Unknown]
